FAERS Safety Report 8135041-4 (Version None)
Quarter: 2012Q1

REPORT INFORMATION
  Report Type: 
  Country: None (occurrence: None)
  Receive Date: 20120210
  Receipt Date: 20120127
  Transmission Date: 20120608
  Serious: Yes (Hospitalization)
  Sender: FDA-Public Use
  Company Number: 2012ST000115

PATIENT
  Age: 62 Year
  Sex: Female

DRUGS (3)
  1. VELCADE [Suspect]
     Indication: HODGKIN'S DISEASE
     Dosage: IV
     Route: 042
     Dates: start: 20120101
  2. MATULANE [Suspect]
     Indication: HODGKIN'S DISEASE
     Dosage: 150 MG;QD;PO
     Route: 048
     Dates: start: 20120106
  3. LEUKERAN [Suspect]
     Indication: HODGKIN'S DISEASE
     Dosage: PO
     Route: 048
     Dates: start: 20120101

REACTIONS (3)
  - DEHYDRATION [None]
  - MOUTH ULCERATION [None]
  - HYPOPHAGIA [None]
